FAERS Safety Report 21510813 (Version 1)
Quarter: 2022Q4

REPORT INFORMATION
  Report Type: Spontaneous
  Country: US (occurrence: US)
  Receive Date: 20221026
  Receipt Date: 20221026
  Transmission Date: 20230113
  Serious: No
  Sender: FDA-Public Use
  Company Number: US-PURDUE PHARMA-USA-2022-0294354

PATIENT
  Sex: Female

DRUGS (3)
  1. OXYCODONE HYDROCHLORIDE [Suspect]
     Active Substance: OXYCODONE HYDROCHLORIDE
     Indication: Pain
     Dosage: 1X10 MG, Q4H
     Route: 048
     Dates: start: 2010
  2. OXYCONTIN [Concomitant]
     Active Substance: OXYCODONE HYDROCHLORIDE
     Indication: Pain
     Dosage: 1X10 MG, DAILY
     Route: 048
     Dates: start: 2010
  3. OXYCONTIN [Concomitant]
     Active Substance: OXYCODONE HYDROCHLORIDE
     Indication: Pain

REACTIONS (3)
  - Drug ineffective [Not Recovered/Not Resolved]
  - Product solubility abnormal [Unknown]
  - Product label issue [Unknown]

NARRATIVE: CASE EVENT DATE: 20220201
